FAERS Safety Report 23985246 (Version 2)
Quarter: 2024Q3

REPORT INFORMATION
  Report Type: Spontaneous
  Country: US (occurrence: None)
  Receive Date: 20240618
  Receipt Date: 20240717
  Transmission Date: 20241017
  Serious: No
  Sender: USAntibiotics
  Company Number: US-USAntibiotics-000318

PATIENT
  Sex: Female

DRUGS (1)
  1. AUGMENTIN [Suspect]
     Active Substance: AMOXICILLIN\CLAVULANATE POTASSIUM
     Indication: Sinusitis
     Route: 048

REACTIONS (1)
  - Drug hypersensitivity [Unknown]
